FAERS Safety Report 6061985-3 (Version None)
Quarter: 2009Q1

REPORT INFORMATION
  Report Type: 
  Country: None (occurrence: None)
  Receive Date: 20090202
  Receipt Date: 20090122
  Transmission Date: 20090719
  Serious: No
  Sender: FDA-Public Use
  Company Number: US-B.I. PHARMACEUTICALS,INC./RIDGEFIELD-2009-BP-00750BP

PATIENT
  Sex: Male

DRUGS (8)
  1. SPIRIVA [Suspect]
     Indication: EMPHYSEMA
     Dosage: 18MCG
     Route: 055
     Dates: start: 20090101
  2. FLOVENT [Suspect]
  3. SIMVASTATIN [Concomitant]
     Indication: BLOOD CHOLESTEROL INCREASED
  4. ASPIRIN [Concomitant]
     Indication: CARDIAC DISORDER
     Dosage: 325MG
  5. METOPROLOL TARTRATE [Concomitant]
     Indication: CARDIAC DISORDER
  6. NIACIN [Concomitant]
     Indication: BLOOD CHOLESTEROL INCREASED
  7. UNSPECIFIED MEDICATION FOR HEART [Concomitant]
     Indication: CARDIAC DISORDER
  8. RANITIDINE [Concomitant]
     Indication: DYSPEPSIA

REACTIONS (4)
  - COUGH [None]
  - DECREASED APPETITE [None]
  - DRY MOUTH [None]
  - NERVOUSNESS [None]
